FAERS Safety Report 15069502 (Version 1)
Quarter: 2018Q2

REPORT INFORMATION
  Report Type: Spontaneous
  Country: DE (occurrence: DE)
  Receive Date: 20180626
  Receipt Date: 20180626
  Transmission Date: 20180711
  Serious: Yes (Life-Threatening, Other)
  Sender: FDA-Public Use
  Company Number: DE-MYLANLABS-2018M1044220

PATIENT
  Age: 55 Year
  Sex: Male

DRUGS (1)
  1. FASTJEKT [Suspect]
     Active Substance: EPINEPHRINE
     Indication: ANAPHYLACTIC SHOCK
     Dosage: ADULT QD
     Dates: start: 20180612

REACTIONS (3)
  - No adverse event [Unknown]
  - Drug effect decreased [Unknown]
  - Product quality issue [Unknown]
